FAERS Safety Report 9550586 (Version 1)
Quarter: 2013Q3

REPORT INFORMATION
  Report Type: Spontaneous
  Country: US (occurrence: US)
  Receive Date: 20130924
  Receipt Date: 20130924
  Transmission Date: 20140515
  Serious: No
  Sender: FDA-Public Use
  Company Number: US-SANOFI-AVENTIS-2013SA036870

PATIENT
  Age: 37 Year
  Sex: Male
  Weight: 74.84 kg

DRUGS (5)
  1. AUBAGIO [Suspect]
     Indication: MULTIPLE SCLEROSIS
     Route: 048
     Dates: start: 20130315, end: 20130515
  2. AUBAGIO [Suspect]
     Indication: MULTIPLE SCLEROSIS
     Route: 048
  3. LISINOPRIL [Concomitant]
     Indication: HYPERTENSION
     Dates: start: 2011
  4. OMEPRAZOLE [Concomitant]
     Indication: DYSPEPSIA
     Dates: start: 2010
  5. IBUPROFEN [Concomitant]
     Indication: HEADACHE

REACTIONS (8)
  - Pruritus [Not Recovered/Not Resolved]
  - Rhinorrhoea [Not Recovered/Not Resolved]
  - Nasopharyngitis [Recovered/Resolved]
  - Chills [Recovered/Resolved]
  - Abdominal pain upper [Recovered/Resolved]
  - Myalgia [Unknown]
  - Paraesthesia [Not Recovered/Not Resolved]
  - Burning sensation [Recovered/Resolved]
